FAERS Safety Report 5876148-1 (Version None)
Quarter: 2008Q3

REPORT INFORMATION
  Report Type: 
  Country: None (occurrence: None)
  Receive Date: 20080910
  Receipt Date: 20080904
  Transmission Date: 20090109
  Serious: Yes (Other)
  Sender: FDA-Public Use
  Company Number: US-WYE-H05871808

PATIENT
  Sex: Male

DRUGS (2)
  1. ROBITUSSIN COUGH [Suspect]
     Indication: DRUG ABUSE
     Dosage: ENTIRE BOTTLE DAILY
     Route: 048
  2. DEXTROMETHORPHAN HYDROBROMIDE [Suspect]
     Indication: DRUG ABUSE
     Dosage: UNKNOWN
     Route: 048

REACTIONS (4)
  - ABNORMAL BEHAVIOUR [None]
  - DRUG ABUSE [None]
  - HALLUCINATION [None]
  - INTENTIONAL OVERDOSE [None]
